FAERS Safety Report 10029160 (Version 3)
Quarter: 2014Q3

REPORT INFORMATION
  Report Type: Spontaneous
  Country: FR (occurrence: FR)
  Receive Date: 20140321
  Receipt Date: 20140916
  Transmission Date: 20150326
  Serious: Yes (Hospitalization)
  Sender: FDA-Public Use
  Company Number: 2014SP001547

PATIENT
  Age: 65 Year
  Sex: Male

DRUGS (18)
  1. METHOTREXATE [Suspect]
     Active Substance: METHOTREXATE
     Indication: PSORIATIC ARTHROPATHY
     Route: 058
     Dates: start: 2006, end: 20140215
  2. PYOSTACINE [Suspect]
     Active Substance: PRISTINAMYCIN
     Indication: PYREXIA
     Route: 048
     Dates: start: 20140203, end: 20140210
  3. FUROSEMIDE /00032602/ [Concomitant]
     Active Substance: FUROSEMIDE
  4. NOVORAPID [Concomitant]
     Active Substance: INSULIN ASPART
  5. PREDNISONE. [Concomitant]
     Active Substance: PREDNISONE
  6. HYPERIUM [Concomitant]
     Active Substance: RILMENIDINE PHOSPHATE
  7. FLUIMUCIL [Suspect]
     Active Substance: ACETYLCYSTEINE
     Indication: COUGH
     Route: 048
     Dates: start: 20140203, end: 20140208
  8. COLCHICINE. [Suspect]
     Active Substance: COLCHICINE
     Indication: ARTHRALGIA
     Route: 048
     Dates: start: 201312, end: 20140215
  9. DAFALGAN [Concomitant]
     Active Substance: ACETAMINOPHEN
     Indication: PAIN
  10. COLCHICINE. [Suspect]
     Active Substance: COLCHICINE
     Indication: OSTEOARTHRITIS
     Route: 048
     Dates: start: 201312, end: 20140215
  11. MONO-TILDIEM [Concomitant]
     Active Substance: DILTIAZEM HYDROCHLORIDE
  12. INEXIUM /01479302/ [Concomitant]
     Active Substance: ESOMEPRAZOLE MAGNESIUM
  13. RASILEZ [Suspect]
     Active Substance: ALISKIREN
     Indication: HYPERTENSION
     Route: 048
     Dates: start: 201401, end: 20140217
  14. TRAMADOL [Concomitant]
     Active Substance: TRAMADOL
     Indication: PAIN
  15. LANTUS [Concomitant]
     Active Substance: INSULIN GLARGINE
  16. MALARONE [Suspect]
     Active Substance: ATOVAQUONE\PROGUANIL HYDROCHLORIDE
     Indication: PROPHYLACTIC CHEMOTHERAPY
     Route: 048
     Dates: start: 201401, end: 20140210
  17. HUMIRA [Suspect]
     Active Substance: ADALIMUMAB
     Indication: PSORIATIC ARTHROPATHY
     Route: 058
     Dates: end: 20140215
  18. TIXOCORTOL [Suspect]
     Active Substance: TIXOCORTOL PIVALATE
     Indication: RHINITIS
     Route: 045
     Dates: start: 20140203, end: 20140208

REACTIONS (7)
  - Thrombocytopenia [Recovered/Resolved]
  - Leukocytosis [Recovered/Resolved]
  - Pyrexia [Recovered/Resolved]
  - Cough [Not Recovered/Not Resolved]
  - Fatigue [Unknown]
  - Petechiae [Unknown]
  - Wheezing [Not Recovered/Not Resolved]

NARRATIVE: CASE EVENT DATE: 20140210
